FAERS Safety Report 19495956 (Version 1)
Quarter: 2021Q3

REPORT INFORMATION
  Report Type: Spontaneous
  Country: US (occurrence: US)
  Receive Date: 20210706
  Receipt Date: 20210706
  Transmission Date: 20211014
  Serious: Yes (Other)
  Sender: FDA-Public Use
  Company Number: US-BAYER-2021-167764

PATIENT
  Age: 39 Year
  Sex: Female

DRUGS (1)
  1. MIRENA [Suspect]
     Active Substance: LEVONORGESTREL
     Indication: CONTRACEPTION
     Dosage: 20 ?G PER DAY, CONTINUOUSLY
     Route: 015
     Dates: start: 20200716, end: 20200724

REACTIONS (4)
  - Device expulsion [Recovered/Resolved]
  - Post procedural haemorrhage [None]
  - Procedural pain [None]
  - Post procedural discomfort [None]

NARRATIVE: CASE EVENT DATE: 20200724
